FAERS Safety Report 4936105-6 (Version None)
Quarter: 2006Q1

REPORT INFORMATION
  Report Type: 
  Country: None (occurrence: None)
  Receive Date: 20060307
  Receipt Date: 20051019
  Transmission Date: 20060701
  Serious: No
  Sender: FDA-Public Use
  Company Number: US-GLAXOSMITHKLINE-A0578787A

PATIENT
  Age: 56 Year
  Sex: Male
  Weight: 93.6 kg

DRUGS (6)
  1. REQUIP [Suspect]
     Indication: RESTLESS LEGS SYNDROME
     Dosage: 1MG UNKNOWN
     Route: 048
     Dates: start: 20050916
  2. ARTHROTEC [Concomitant]
     Route: 065
  3. ALTACE [Concomitant]
     Route: 065
  4. ACETYLSALICYLIC ACID SRT [Concomitant]
     Route: 065
  5. LIPITOR [Concomitant]
     Route: 065
  6. NIASPAN [Concomitant]
     Route: 065

REACTIONS (3)
  - DRUG INTERACTION [None]
  - PRURITUS GENERALISED [None]
  - URTICARIA [None]
